FAERS Safety Report 5001665-6 (Version None)
Quarter: 2006Q2

REPORT INFORMATION
  Report Type: 
  Country: None (occurrence: None)
  Receive Date: 20060515
  Receipt Date: 20060414
  Transmission Date: 20061013
  Serious: Yes (Life-Threatening)
  Sender: FDA-Public Use
  Company Number: JP-AVENTIS-200611239JP

PATIENT
  Age: 70 Year
  Sex: Female
  Weight: 46 kg

DRUGS (12)
  1. ARAVA [Suspect]
     Indication: RHEUMATOID ARTHRITIS
     Route: 048
     Dates: start: 20040323, end: 20040325
  2. ARAVA [Suspect]
     Route: 048
     Dates: start: 20040326, end: 20040706
  3. ARAVA [Suspect]
     Route: 048
     Dates: start: 20040707, end: 20040804
  4. ARAVA [Suspect]
     Route: 048
     Dates: start: 20040805
  5. PREDNISOLONE [Concomitant]
     Indication: RHEUMATOID ARTHRITIS
     Route: 048
  6. OMEPRAL [Concomitant]
     Indication: GASTRIC ULCER
     Route: 048
  7. ULCERLMIN [Concomitant]
     Indication: GASTRIC ULCER
     Route: 048
  8. GANATON [Concomitant]
     Indication: GASTROINTESTINAL DISORDER
     Route: 048
  9. ALFAROL [Concomitant]
     Indication: OSTEOPOROSIS
     Route: 048
  10. ASPARA [Concomitant]
     Indication: OSTEOPOROSIS
     Route: 048
  11. DIDRONEL [Concomitant]
     Indication: OSTEOPOROSIS
     Route: 048
  12. FASTIC [Concomitant]
     Indication: DIABETES MELLITUS
     Route: 048
     Dates: start: 20050927

REACTIONS (1)
  - GASTRIC CANCER [None]
